FAERS Safety Report 11492975 (Version 1)
Quarter: 2015Q3

REPORT INFORMATION
  Report Type: Spontaneous
  Country: BR (occurrence: BR)
  Receive Date: 20150911
  Receipt Date: 20150911
  Transmission Date: 20151125
  Serious: Yes (Death, Hospitalization)
  Sender: FDA-Public Use
  Company Number: BR-PFIZER INC-2015258008

PATIENT
  Age: 62 Year
  Sex: Female

DRUGS (3)
  1. METAMIZOLE [Concomitant]
     Active Substance: METAMIZOLE
     Indication: PYREXIA
     Dosage: UNSPECIFIED DOSE, ONLY IF FEVER
  2. MORPHINE [Concomitant]
     Active Substance: MORPHINE
  3. SUTENT [Suspect]
     Active Substance: SUNITINIB MALATE
     Indication: METASTATIC RENAL CELL CARCINOMA
     Dosage: 50 MG, CYCLE DAILY 4 X 2
     Route: 048
     Dates: start: 20150614, end: 2015

REACTIONS (5)
  - Diarrhoea [Recovered/Resolved]
  - Disease progression [Fatal]
  - Metastatic renal cell carcinoma [Fatal]
  - Hypophagia [Unknown]
  - Dehydration [Unknown]

NARRATIVE: CASE EVENT DATE: 20150624
